FAERS Safety Report 14247066 (Version 1)
Quarter: 2017Q4

REPORT INFORMATION
  Report Type: Spontaneous
  Country: JP (occurrence: JP)
  Receive Date: 20171204
  Receipt Date: 20171204
  Transmission Date: 20180321
  Serious: Yes (Other)
  Sender: FDA-Public Use
  Company Number: PHHY2017JP174954

PATIENT
  Age: 74 Year
  Sex: Female

DRUGS (4)
  1. VALPROATE SODIUM. [Suspect]
     Active Substance: VALPROATE SODIUM
     Indication: DEMENTIA ALZHEIMER^S TYPE
     Dosage: 200 MG, UNK
     Route: 065
  2. MEMANTINE. [Suspect]
     Active Substance: MEMANTINE
     Indication: DEMENTIA ALZHEIMER^S TYPE
     Dosage: 10 MG, UNK
     Route: 065
  3. QUETIAPINE. [Suspect]
     Active Substance: QUETIAPINE
     Indication: DEMENTIA ALZHEIMER^S TYPE
     Dosage: 100 MG, UNK
     Route: 065
  4. ACETYL-L-CARNITINE [Concomitant]
     Indication: PRODUCT USED FOR UNKNOWN INDICATION
     Dosage: 2 G, UNK
     Route: 065

REACTIONS (2)
  - Product use in unapproved indication [Unknown]
  - Hyperammonaemia [Recovering/Resolving]
